FAERS Safety Report 11293147 (Version 2)
Quarter: 2015Q3

REPORT INFORMATION
  Report Type: Other
  Country: IT (occurrence: IT)
  Receive Date: 20150722
  Receipt Date: 20150817
  Transmission Date: 20151125
  Serious: Yes (Hospitalization)
  Sender: FDA-Public Use
  Company Number: IT-MYLANLABS-2015M1024358

PATIENT

DRUGS (5)
  1. SPIDIFEN                           /00109201/ [Concomitant]
     Indication: PERICARDITIS
     Dosage: 1800 MG, UNK
     Dates: start: 20150202, end: 20150210
  2. COLCHICINE. [Concomitant]
     Active Substance: COLCHICINE
     Indication: GOUT
     Dosage: 40 MG, UNK
     Dates: start: 20150202, end: 20150210
  3. COLCHICINA LIRCA [Suspect]
     Active Substance: COLCHICINE
     Indication: GOUT
     Dosage: 1 MG DAILY
     Route: 048
     Dates: start: 20150202, end: 20150210
  4. PANTORC [Concomitant]
     Active Substance: PANTOPRAZOLE SODIUM
     Indication: PRODUCT USED FOR UNKNOWN INDICATION
  5. IBUPROFEN LYSINE [Suspect]
     Active Substance: IBUPROFEN LYSINE
     Indication: PERICARDITIS
     Dosage: 1800 MG DAILY
     Route: 048
     Dates: start: 20150202, end: 20150210

REACTIONS (2)
  - Heart rate increased [Unknown]
  - Dyspnoea [Recovered/Resolved]

NARRATIVE: CASE EVENT DATE: 20150210
